FAERS Safety Report 6314765-5 (Version None)
Quarter: 2009Q3

REPORT INFORMATION
  Report Type: 
  Country: None (occurrence: None)
  Receive Date: 20090817
  Receipt Date: 20090805
  Transmission Date: 20100115
  Serious: Yes (Life-Threatening)
  Sender: FDA-Public Use
  Company Number: B0588157A

PATIENT
  Age: 18 Year
  Sex: Male
  Weight: 94.8018 kg

DRUGS (2)
  1. WELLBUTRIN XL [Suspect]
     Indication: DEPRESSION
     Dates: start: 20090610, end: 20090610
  2. METHYLPHENIDATE HC1 [Concomitant]

REACTIONS (2)
  - CONVULSION [None]
  - TONGUE BITING [None]
